FAERS Safety Report 6768206-4 (Version None)
Quarter: 2010Q2

REPORT INFORMATION
  Report Type: 
  Country: None (occurrence: None)
  Receive Date: 20100614
  Receipt Date: 20100609
  Transmission Date: 20101027
  Serious: Yes (Death, Hospitalization, Other)
  Sender: FDA-Public Use
  Company Number: US-MERCK-1001USA03819

PATIENT
  Age: 59 Year
  Sex: Male

DRUGS (5)
  1. FOSAMAX [Suspect]
     Indication: MULTIPLE MYELOMA
     Route: 048
  2. DIOVAN [Concomitant]
     Route: 065
     Dates: start: 19800101, end: 20071001
  3. METOPROLOL [Concomitant]
     Route: 065
     Dates: start: 19800101, end: 20071001
  4. ZOMETA [Suspect]
     Route: 065
     Dates: start: 20000301, end: 20060101
  5. AREDIA [Suspect]
     Route: 065
     Dates: start: 20000301, end: 20060101

REACTIONS (27)
  - ANXIETY [None]
  - APHAGIA [None]
  - BLADDER OBSTRUCTION [None]
  - BUNION [None]
  - COLON CANCER METASTATIC [None]
  - COUGH [None]
  - CYST [None]
  - DEEP VEIN THROMBOSIS [None]
  - DENTAL CARIES [None]
  - DEPRESSION [None]
  - DYSPNOEA [None]
  - EXOSTOSIS [None]
  - HEPATIC MASS [None]
  - LIPOMA [None]
  - MALIGNANT MELANOMA [None]
  - MULTIPLE MYELOMA [None]
  - NEUROPATHY PERIPHERAL [None]
  - OEDEMA PERIPHERAL [None]
  - OSTEOMYELITIS [None]
  - OSTEONECROSIS OF JAW [None]
  - OSTEOPENIA [None]
  - PAIN [None]
  - PATHOLOGICAL FRACTURE [None]
  - PLEURISY [None]
  - PNEUMONIA [None]
  - PULMONARY EMBOLISM [None]
  - SPINAL COMPRESSION FRACTURE [None]
